FAERS Safety Report 9968580 (Version 1)
Quarter: 2014Q1

REPORT INFORMATION
  Report Type: Report from Study
  Country: US (occurrence: US)
  Receive Date: 20140306
  Receipt Date: 20140306
  Transmission Date: 20141002
  Serious: No
  Sender: FDA-Public Use
  Company Number: US-ABBVIE-13P-163-1146977-00

PATIENT
  Age: 40 Year
  Sex: Female

DRUGS (6)
  1. HUMIRA [Suspect]
     Indication: CROHN^S DISEASE
     Dates: start: 20130730
  2. VITAMIN D [Concomitant]
     Indication: NUTRITIONAL SUPPLEMENTATION
     Dosage: DAILY
  3. OMEPRAZOLE [Concomitant]
     Indication: CHOLELITHIASIS
     Dosage: 20 MG EVERY DAY
  4. DICYCLOMINE [Concomitant]
     Indication: MUSCLE SPASMS
     Dosage: 10 MG EVERY DAY
  5. BALSALAZIDE [Concomitant]
     Indication: CROHN^S DISEASE
  6. CITALOPRAM [Concomitant]
     Indication: DEPRESSION
     Dosage: 20 MG EVERY DAY
     Dates: start: 2011

REACTIONS (2)
  - Circumstance or information capable of leading to medication error [Unknown]
  - Injection site pain [Unknown]
